FAERS Safety Report 4595115-1 (Version None)
Quarter: 2005Q1

REPORT INFORMATION
  Report Type: 
  Country: None (occurrence: None)
  Receive Date: 20050223
  Receipt Date: 20050211
  Transmission Date: 20050727
  Serious: Yes (Death, Congenital Anomaly)
  Sender: FDA-Public Use
  Company Number: 2005-02-0002

PATIENT
  Sex: Male
  Weight: 1.1 kg

DRUGS (3)
  1. BECLOMETHASONE DIPROPIONATE [Suspect]
     Dosage: TRANSPLACENTAL
     Route: 064
  2. ALBUTEROL SULFATE [Suspect]
     Dosage: TRANSPLACENTAL
     Route: 064
  3. CANDESARTAN CILEXETIL [Suspect]
     Dosage: TRANSPLACENTAL
     Route: 064

REACTIONS (23)
  - AMNIOCENTESIS ABNORMAL [None]
  - BLADDER AGENESIS [None]
  - BONE DISORDER [None]
  - COMPUTERISED TOMOGRAM ABNORMAL [None]
  - CONGENITAL ANOMALY [None]
  - CONGENITAL FOOT MALFORMATION [None]
  - CRANIAL SUTURES WIDENING [None]
  - DOUBLE URETER [None]
  - DRUG EXPOSURE DURING PREGNANCY [None]
  - FOETAL GROWTH RETARDATION [None]
  - FOETAL HEART RATE ABNORMAL [None]
  - HYPOSPADIAS [None]
  - JOINT CONTRACTURE [None]
  - KIDNEY ENLARGEMENT [None]
  - KIDNEY MALFORMATION [None]
  - NEONATAL ANURIA [None]
  - NEONATAL HYPOTENSION [None]
  - PULMONARY CONGESTION [None]
  - RENAL AGENESIS [None]
  - RENAL TUBULAR DISORDER [None]
  - SINGLE FUNCTIONAL KIDNEY [None]
  - SKULL MALFORMATION [None]
  - THERAPY NON-RESPONDER [None]
